FAERS Safety Report 22821291 (Version 3)
Quarter: 2023Q4

REPORT INFORMATION
  Report Type: Report from Study
  Country: TR (occurrence: None)
  Receive Date: 20230814
  Receipt Date: 20231127
  Transmission Date: 20240110
  Serious: Yes (Hospitalization)
  Sender: FDA-Public Use
  Company Number: TR-ROCHE-3400879

PATIENT
  Age: 60 Year
  Sex: Male
  Weight: 72.4 kg

DRUGS (35)
  1. ATEZOLIZUMAB [Suspect]
     Active Substance: ATEZOLIZUMAB
     Indication: Small cell lung cancer extensive stage
     Dosage: ON 26/JUL/2023, HE RECEIVED THE MOST RECENT DOSE OF 1200 MG ATEZOLIZUMAB PRIOR TO AE/SAE.
     Route: 041
     Dates: start: 20221020
  2. LURBINECTEDIN [Suspect]
     Active Substance: LURBINECTEDIN
     Indication: Small cell lung cancer extensive stage
     Dosage: ON 26/JUL/2023, HE RECEIVED THE MOST RECENT DOSE OF 6.01 MG LURBINECTEDIN PRIOR TO AE/SAE.
     Route: 042
     Dates: start: 20230110
  3. CARBOPLATIN [Suspect]
     Active Substance: CARBOPLATIN
     Indication: Small cell lung cancer extensive stage
     Dosage: ON 20/DEC/2022, HE RECEIVED THE MOST RECENT DOSE OF 713.1 MG CARBOPLATIN PRIOR TO AE/SAE.
     Route: 042
     Dates: start: 20221020
  4. ETOPOSIDE [Suspect]
     Active Substance: ETOPOSIDE
     Indication: Small cell lung cancer extensive stage
     Dosage: ON 20/DEC/2022, HE RECEIVED THE MOST RECENT DOSE OF 183.6 MG ETOPOSIDE PRIOR TO AE/SAE.
     Route: 065
     Dates: start: 20221020
  5. IPRAVENT (TURKEY) [Concomitant]
     Indication: Chronic obstructive pulmonary disease
     Dates: start: 2022
  6. CLONEX (TURKEY) [Concomitant]
     Indication: Depression
     Dates: start: 2022
  7. FORPACK [Concomitant]
     Indication: Depression
     Dates: start: 2022
  8. FORPACK [Concomitant]
     Indication: Chronic obstructive pulmonary disease
  9. ZEDPREX [Concomitant]
     Indication: Depression
     Dates: start: 2022
  10. LEVOTHYROXINE SODIUM [Concomitant]
     Active Substance: LEVOTHYROXINE SODIUM
     Indication: Hypothyroidism
     Dates: start: 20230313
  11. LEVOTHYROXINE SODIUM [Concomitant]
     Active Substance: LEVOTHYROXINE SODIUM
     Dates: start: 20230315
  12. GLICLAZIDE [Concomitant]
     Active Substance: GLICLAZIDE
     Indication: Diabetes mellitus
     Dates: start: 20230313
  13. RANEKS [Concomitant]
     Indication: Prophylaxis
     Dates: start: 20230313
  14. DIYATIX [Concomitant]
     Indication: Diabetes mellitus
     Dates: start: 20230313
  15. PANTO (TURKEY) [Concomitant]
     Dates: start: 20230518
  16. PREDNISOLONE [Concomitant]
     Active Substance: PREDNISOLONE
     Indication: Fatigue
     Route: 048
     Dates: start: 20230615
  17. ZOMETA [Concomitant]
     Active Substance: ZOLEDRONIC ACID
     Dates: start: 20230705, end: 20230705
  18. ZOMETA [Concomitant]
     Active Substance: ZOLEDRONIC ACID
     Dates: start: 20230905, end: 20230905
  19. ZOMETA [Concomitant]
     Active Substance: ZOLEDRONIC ACID
     Dates: start: 20231019, end: 20231019
  20. GRANITRON [Concomitant]
     Dates: start: 20230705, end: 20230705
  21. GRANITRON [Concomitant]
     Dates: start: 20230726, end: 20230726
  22. GRANITRON [Concomitant]
     Dates: start: 20230905, end: 20230905
  23. GRANITRON [Concomitant]
     Dates: start: 20230927, end: 20230927
  24. GRANITRON [Concomitant]
     Dates: start: 20231019, end: 20231019
  25. GRANITRON [Concomitant]
     Dates: start: 20231115, end: 20231115
  26. RANITIDINE HYDROCHLORIDE [Concomitant]
     Active Substance: RANITIDINE HYDROCHLORIDE
     Dates: start: 20230705, end: 20230705
  27. RANITIDINE HYDROCHLORIDE [Concomitant]
     Active Substance: RANITIDINE HYDROCHLORIDE
     Dates: start: 20230726, end: 20230726
  28. RANITIDINE HYDROCHLORIDE [Concomitant]
     Active Substance: RANITIDINE HYDROCHLORIDE
     Dates: start: 20230927, end: 20230927
  29. RANITIDINE HYDROCHLORIDE [Concomitant]
     Active Substance: RANITIDINE HYDROCHLORIDE
     Dates: start: 20231019, end: 20231019
  30. RANITIDINE HYDROCHLORIDE [Concomitant]
     Active Substance: RANITIDINE HYDROCHLORIDE
     Dates: start: 20231115, end: 20231115
  31. PHENIRAMINE [Concomitant]
     Active Substance: PHENIRAMINE
     Dates: start: 20230705, end: 20230705
  32. PHENIRAMINE [Concomitant]
     Active Substance: PHENIRAMINE
     Dates: start: 20230726, end: 20230726
  33. PHENIRAMINE [Concomitant]
     Active Substance: PHENIRAMINE
     Dates: start: 20230927, end: 20230927
  34. PHENIRAMINE [Concomitant]
     Active Substance: PHENIRAMINE
     Dates: start: 20231019, end: 20231019
  35. PHENIRAMINE [Concomitant]
     Active Substance: PHENIRAMINE
     Dates: start: 20231115, end: 20231115

REACTIONS (1)
  - Syncope [Not Recovered/Not Resolved]

NARRATIVE: CASE EVENT DATE: 20230803
